FAERS Safety Report 6168223-1 (Version None)
Quarter: 2009Q2

REPORT INFORMATION
  Report Type: 
  Country: None (occurrence: None)
  Receive Date: 20090427
  Receipt Date: 20090422
  Transmission Date: 20091009
  Serious: Yes (Death, Hospitalization, Other)
  Sender: FDA-Public Use
  Company Number: PHHY2009JP11060

PATIENT
  Sex: Female
  Weight: 37 kg

DRUGS (6)
  1. DIOVAN T30230+TAB+HY [Suspect]
     Indication: HYPERTENSION
     Dosage: 80 MG, QD
     Route: 048
     Dates: start: 20080210, end: 20080323
  2. TAZOCIN [Concomitant]
     Dosage: 5 G
     Route: 041
     Dates: start: 20080311, end: 20080318
  3. FINIBAX [Concomitant]
     Dosage: 0.75 G
     Route: 041
     Dates: start: 20080320, end: 20080326
  4. IMMUNE GLOBULIN INTRAVENOUS (HUMAN) [Concomitant]
     Dosage: 2.5 G
     Dates: start: 20080321, end: 20080323
  5. ORGARAN [Concomitant]
     Dosage: 2 ML
     Route: 042
     Dates: start: 20080325, end: 20080330
  6. DEXAMETHASONE SODIUM PHOSPHATE [Concomitant]
     Dosage: 500 MG
     Route: 042
     Dates: start: 20080327, end: 20080410

REACTIONS (9)
  - APHAGIA [None]
  - BLOOD GLUCOSE INCREASED [None]
  - BLOOD PRESSURE DECREASED [None]
  - CONDITION AGGRAVATED [None]
  - GENERAL PHYSICAL HEALTH DETERIORATION [None]
  - HYPERKALAEMIA [None]
  - HYPOXIA [None]
  - PNEUMONIA ASPIRATION [None]
  - URINARY TRACT INFECTION [None]
